FAERS Safety Report 11219935 (Version 2)
Quarter: 2015Q3

REPORT INFORMATION
  Report Type: Spontaneous
  Country: US (occurrence: None)
  Receive Date: 20150624
  Receipt Date: 20150717
  Transmission Date: 20151125
  Serious: Yes (Other)
  Sender: FDA-Public Use
  Company Number: 2015RIS00086

PATIENT
  Age: 79 Year
  Sex: Female
  Weight: 81.6 kg

DRUGS (1)
  1. CETIRIZINE HYDROCHLORIDE. [Suspect]
     Active Substance: CETIRIZINE HYDROCHLORIDE
     Indication: MULTIPLE ALLERGIES
     Route: 048
     Dates: start: 2014

REACTIONS (2)
  - Bronchitis [None]
  - Aortic aneurysm [None]

NARRATIVE: CASE EVENT DATE: 201504
